FAERS Safety Report 17741584 (Version 2)
Quarter: 2020Q2

REPORT INFORMATION
  Report Type: Spontaneous
  Country: US (occurrence: US)
  Receive Date: 20200504
  Receipt Date: 20200629
  Transmission Date: 20200714
  Serious: No
  Sender: FDA-Public Use
  Company Number: US-ASTRAZENECA-2020SE50798

PATIENT
  Sex: Male

DRUGS (1)
  1. SYMBICORT [Suspect]
     Active Substance: BUDESONIDE\FORMOTEROL FUMARATE DIHYDRATE
     Dosage: 160/4.5 MCGS UNKNOWN FREQUENCY UNKNOWN
     Route: 055

REACTIONS (3)
  - Wrong technique in product usage process [Unknown]
  - Product label issue [Unknown]
  - Oropharyngeal discomfort [Unknown]
